FAERS Safety Report 16127279 (Version 1)
Quarter: 2019Q1

REPORT INFORMATION
  Report Type: Other
  Country: HR (occurrence: HR)
  Receive Date: 20190328
  Receipt Date: 20190328
  Transmission Date: 20190418
  Serious: Yes (Other)
  Sender: FDA-Public Use
  Company Number: HR-CELLTRION INC.-2019HR019597

PATIENT

DRUGS (1)
  1. REMSIMA [Suspect]
     Active Substance: INFLIXIMAB
     Indication: CROHN^S DISEASE
     Dosage: 300 MG, EVERY 8 WEEKS (100 MG; 300 MG IV SVAKIH 8 TJEDANA)
     Route: 042
     Dates: start: 201804, end: 201809

REACTIONS (2)
  - Underdose [Unknown]
  - Drug ineffective [Not Recovered/Not Resolved]

NARRATIVE: CASE EVENT DATE: 201804
